FAERS Safety Report 9920365 (Version 1)
Quarter: 2014Q1

REPORT INFORMATION
  Report Type: Report from Study
  Country: BD (occurrence: BD)
  Receive Date: 20140224
  Receipt Date: 20140224
  Transmission Date: 20141002
  Serious: Yes (Death, Hospitalization)
  Sender: FDA-Public Use
  Company Number: PHHY2014BD022210

PATIENT
  Age: 85 Year
  Sex: Male

DRUGS (1)
  1. EXELON PATCH [Suspect]
     Indication: DEMENTIA
     Dosage: 5CM (4.6 MG/24 HOURS)
     Route: 062
     Dates: start: 20140119

REACTIONS (3)
  - Dyspnoea [Fatal]
  - Aphagia [Unknown]
  - Asthenia [Unknown]
